FAERS Safety Report 23285631 (Version 1)
Quarter: 2023Q4

REPORT INFORMATION
  Report Type: Spontaneous
  Country: CN (occurrence: CN)
  Receive Date: 20231212
  Receipt Date: 20231212
  Transmission Date: 20240109
  Serious: Yes (Other)
  Sender: FDA-Public Use
  Company Number: CN-MYLANLABS-2023M1131051

PATIENT
  Age: 73 Year
  Sex: Female
  Weight: 45 kg

DRUGS (2)
  1. LIPITOR [Suspect]
     Active Substance: ATORVASTATIN CALCIUM
     Indication: Cerebral infarction
     Dosage: 40 MILLIGRAM, QD
     Route: 048
     Dates: start: 20231115, end: 20231122
  2. LIPITOR [Suspect]
     Active Substance: ATORVASTATIN CALCIUM
     Indication: Cerebral artery thrombosis
     Dosage: 20 MILLIGRAM, HS, QN
     Route: 048
     Dates: start: 20231122

REACTIONS (2)
  - Transaminases increased [Recovered/Resolved]
  - Myocardial necrosis marker increased [Recovered/Resolved]

NARRATIVE: CASE EVENT DATE: 20231122
